FAERS Safety Report 10424308 (Version 1)
Quarter: 2014Q3

REPORT INFORMATION
  Report Type: Spontaneous
  Country: FR (occurrence: FR)
  Receive Date: 20140902
  Receipt Date: 20140902
  Transmission Date: 20150326
  Serious: Yes (Hospitalization, Other)
  Sender: FDA-Public Use
  Company Number: FR-ELI_LILLY_AND_COMPANY-FR201408008772

PATIENT
  Age: 71 Year
  Sex: Male
  Weight: 46 kg

DRUGS (4)
  1. LEVEMIR [Suspect]
     Active Substance: INSULIN DETEMIR
     Dosage: 10 IU, TID
     Route: 065
  2. HUMALOG [Suspect]
     Active Substance: INSULIN LISPRO
     Dosage: 46 IU, QD
     Route: 065
  3. HUMALOG [Suspect]
     Active Substance: INSULIN LISPRO
     Indication: TYPE 2 DIABETES MELLITUS
     Dosage: 10 IU, TID
     Dates: start: 201403
  4. LEVEMIR [Suspect]
     Active Substance: INSULIN DETEMIR
     Indication: TYPE 2 DIABETES MELLITUS
     Dosage: 46 IU, QD
     Dates: start: 201403

REACTIONS (6)
  - Nephropathy [Unknown]
  - Hypoglycaemia [Recovered/Resolved]
  - Abdominal pain [Unknown]
  - Hypertension [Unknown]
  - Retinopathy [Unknown]
  - Incorrect dose administered [Recovered/Resolved]

NARRATIVE: CASE EVENT DATE: 2013
